FAERS Safety Report 4497886-1 (Version None)
Quarter: 2004Q4

REPORT INFORMATION
  Report Type: 
  Country: None (occurrence: None)
  Receive Date: 20041104
  Receipt Date: 20041021
  Transmission Date: 20050328
  Serious: Yes (Other)
  Sender: FDA-Public Use
  Company Number: 2004240700GB

PATIENT
  Age: 29 Year
  Sex: Female
  Weight: 80 kg

DRUGS (5)
  1. CELEBREX [Suspect]
     Indication: PAIN
     Dosage: 200 MG, BID, ORAL
     Route: 048
     Dates: start: 20040903, end: 20040930
  2. MIRAPEX [Suspect]
     Dosage: 700  UG, TID, ORAL
     Route: 048
     Dates: start: 20040609
  3. LANSOPRAZOLE [Concomitant]
  4. CO-CODAMOL [Concomitant]
  5. ERYTHROMYCIN [Concomitant]

REACTIONS (2)
  - DRUG INTERACTION [None]
  - DYSTONIA [None]
